FAERS Safety Report 9256684 (Version 1)
Quarter: 2013Q2

REPORT INFORMATION
  Report Type: Spontaneous
  Country: US (occurrence: US)
  Receive Date: 20130426
  Receipt Date: 20130426
  Transmission Date: 20140414
  Serious: No
  Sender: FDA-Public Use
  Company Number: US-BIOGENIDEC-2013BI035528

PATIENT
  Sex: Female

DRUGS (1)
  1. AVONEX [Suspect]
     Indication: MULTIPLE SCLEROSIS
     Route: 030
     Dates: start: 20111029, end: 20120724

REACTIONS (6)
  - Multiple sclerosis [Not Recovered/Not Resolved]
  - Paraesthesia [Not Recovered/Not Resolved]
  - Influenza like illness [Recovered/Resolved]
  - Depression [Not Recovered/Not Resolved]
  - Anxiety [Recovered/Resolved]
  - Depressed mood [Unknown]
